FAERS Safety Report 11820582 (Version 1)
Quarter: 2015Q4

REPORT INFORMATION
  Report Type: Spontaneous
  Country: IT (occurrence: IT)
  Receive Date: 20151210
  Receipt Date: 20151210
  Transmission Date: 20160305
  Serious: Yes (Other)
  Sender: FDA-Public Use
  Company Number: IT-ACTAVIS-2015-26342

PATIENT
  Sex: Male

DRUGS (7)
  1. TRITTICO [Suspect]
     Active Substance: TRAZODONE HYDROCHLORIDE
     Indication: DRUG ABUSE
     Dosage: 3 DF, TOTAL
     Route: 048
  2. ANSIOLIN [Suspect]
     Active Substance: DIAZEPAM
     Indication: DRUG ABUSE
     Dosage: 5 MG, DAILY
  3. DEPAKENE [Concomitant]
     Active Substance: VALPROIC ACID
     Dosage: 1 DF, UNK
  4. ANSIOLIN [Suspect]
     Active Substance: DIAZEPAM
     Indication: DRUG ABUSE
     Dosage: 20 GTT DROP(S), TOTAL
     Route: 048
  5. MIRTAZAPINE. [Concomitant]
     Active Substance: MIRTAZAPINE
     Dosage: 30 MG, UNK
  6. QUETIAPINE (UNKNOWN) [Suspect]
     Active Substance: QUETIAPINE
     Indication: DRUG ABUSE
     Dosage: 600 MG, TOTAL
     Route: 048
  7. LITHIUM. [Concomitant]
     Active Substance: LITHIUM
     Dosage: 450 MG, UNK

REACTIONS (2)
  - Drug abuse [Recovering/Resolving]
  - Psychomotor hyperactivity [Recovering/Resolving]
